FAERS Safety Report 9163076 (Version 1)
Quarter: 2013Q1

REPORT INFORMATION
  Report Type: Spontaneous
  Country: BE (occurrence: BE)
  Receive Date: 20130314
  Receipt Date: 20130314
  Transmission Date: 20140127
  Serious: Yes (Hospitalization)
  Sender: FDA-Public Use
  Company Number: BE-B.I. PHARMACEUTICALS,INC./RIDGEFIELD-2013-BL-00128BL

PATIENT
  Age: 50 Year
  Sex: Male
  Weight: 75 kg

DRUGS (4)
  1. PRADAXA [Suspect]
     Indication: ANTICOAGULANT THERAPY
     Dosage: 150 MG
     Route: 048
     Dates: start: 20130204, end: 20130210
  2. CARBAMAZEPINE [Concomitant]
     Indication: EPILEPSY
     Dosage: 800 MG
     Route: 048
  3. INDERAL RETARD [Concomitant]
     Indication: MIGRAINE
     Dosage: 80 MG
     Route: 048
  4. PAROXETINE [Concomitant]
     Indication: DEPRESSION
     Dosage: 20 MG
     Route: 048

REACTIONS (3)
  - Migraine with aura [Not Recovered/Not Resolved]
  - Arthralgia [Not Recovered/Not Resolved]
  - Joint contracture [Not Recovered/Not Resolved]
